FAERS Safety Report 7298724-4 (Version None)
Quarter: 2011Q1

REPORT INFORMATION
  Report Type: 
  Country: None (occurrence: None)
  Receive Date: 20110217
  Receipt Date: 20110211
  Transmission Date: 20110831
  Serious: Yes (Death, Other)
  Sender: FDA-Public Use
  Company Number: US-PFIZER INC-2011031346

PATIENT
  Sex: Male

DRUGS (4)
  1. LAMICTAL [Suspect]
     Indication: BIPOLAR DISORDER
     Dosage: 200 MG, 1X/DAY
  2. AMBIEN [Suspect]
     Indication: BIPOLAR DISORDER
     Dosage: 10 MG, NIGHTLY AS NEEDED
     Route: 048
     Dates: start: 20040101
  3. AMBIEN [Suspect]
     Indication: INSOMNIA
  4. PRISTIQ [Suspect]
     Indication: BIPOLAR DISORDER

REACTIONS (4)
  - COMPLETED SUICIDE [None]
  - ACCIDENTAL OVERDOSE [None]
  - MEMORY IMPAIRMENT [None]
  - CONFUSIONAL STATE [None]
